FAERS Safety Report 7506827-1 (Version None)
Quarter: 2011Q2

REPORT INFORMATION
  Report Type: 
  Country: None (occurrence: None)
  Receive Date: 20110526
  Receipt Date: 20110516
  Transmission Date: 20111010
  Serious: Yes (Other)
  Sender: FDA-Public Use
  Company Number: A0929176A

PATIENT
  Sex: Female

DRUGS (3)
  1. SURGERY [Concomitant]
  2. CAPECITABINE [Suspect]
     Dosage: 3TAB TWICE PER DAY
     Route: 048
  3. TYKERB [Suspect]
     Dosage: 1250MG PER DAY
     Route: 048
     Dates: start: 20090101

REACTIONS (4)
  - SKIN HYPERPIGMENTATION [None]
  - DRY SKIN [None]
  - PALMAR-PLANTAR ERYTHRODYSAESTHESIA SYNDROME [None]
  - SKIN DISORDER [None]
